FAERS Safety Report 16807097 (Version 4)
Quarter: 2019Q4

REPORT INFORMATION
  Report Type: Spontaneous
  Country: BR (occurrence: BR)
  Receive Date: 20190913
  Receipt Date: 20191210
  Transmission Date: 20200122
  Serious: Yes (Other)
  Sender: FDA-Public Use
  Company Number: BR-GLAXOSMITHKLINE-BR2019AMR164412

PATIENT
  Weight: 75 kg

DRUGS (1)
  1. NUCALA [Suspect]
     Active Substance: MEPOLIZUMAB
     Indication: ASTHMA
     Dosage: 100 MG, UNK
     Dates: start: 20190806

REACTIONS (6)
  - Cataract [Unknown]
  - Vision blurred [Unknown]
  - Dizziness [Unknown]
  - Asthmatic crisis [Recovered/Resolved]
  - Drug ineffective [Unknown]
  - Dysgeusia [Unknown]
